FAERS Safety Report 7227842-1 (Version None)
Quarter: 2011Q1

REPORT INFORMATION
  Report Type: 
  Country: None (occurrence: None)
  Receive Date: 20110114
  Receipt Date: 20110106
  Transmission Date: 20110831
  Serious: Yes (Other)
  Sender: FDA-Public Use
  Company Number: US-JNJFOC-20110102131

PATIENT
  Sex: Female
  Weight: 72.58 kg

DRUGS (5)
  1. CELEBREX [Concomitant]
     Indication: ARTHRITIS
     Route: 048
  2. HYDROXYZINE [Concomitant]
     Indication: SLEEP DISORDER THERAPY
     Route: 048
  3. RHINOCORT [Concomitant]
     Indication: MULTIPLE ALLERGIES
     Route: 045
  4. ELMIRON [Suspect]
     Indication: CYSTITIS INTERSTITIAL
     Route: 048
  5. ALLEGRA [Concomitant]
     Indication: MULTIPLE ALLERGIES
     Route: 048

REACTIONS (3)
  - BLADDER PAIN [None]
  - CYSTITIS [None]
  - BLOOD URINE PRESENT [None]
